FAERS Safety Report 20010793 (Version 1)
Quarter: 2021Q4

REPORT INFORMATION
  Report Type: Report from Study
  Country: CA (occurrence: CA)
  Receive Date: 20211028
  Receipt Date: 20211028
  Transmission Date: 20220303
  Serious: Yes (Hospitalization)
  Sender: FDA-Public Use
  Company Number: CA-TEVA-2021-CA-1968901

PATIENT
  Age: 31 Year
  Sex: Male

DRUGS (10)
  1. SERTRALINE [Suspect]
     Active Substance: SERTRALINE HYDROCHLORIDE
     Indication: Schizoaffective disorder depressive type
     Dosage: 100 MILLIGRAM DAILY;
     Route: 065
  2. SERTRALINE [Suspect]
     Active Substance: SERTRALINE HYDROCHLORIDE
     Indication: Catatonia
  3. LORAZEPAM [Suspect]
     Active Substance: LORAZEPAM
     Indication: Schizoaffective disorder depressive type
     Dosage: 12 MILLIGRAM DAILY;
     Route: 065
  4. LORAZEPAM [Suspect]
     Active Substance: LORAZEPAM
     Indication: Catatonia
  5. ZOPICLONE [Suspect]
     Active Substance: ZOPICLONE
     Indication: Catatonia
     Dosage: UP TO MAXIMUM 15 MG FOUR TIMES A DAY IN THE DAYTIME
     Route: 048
  6. ZOPICLONE [Suspect]
     Active Substance: ZOPICLONE
     Dosage: 3.75 MILLIGRAM DAILY; BEDTIME
     Route: 048
  7. INVEGA SUSTENNA [Suspect]
     Active Substance: PALIPERIDONE PALMITATE
     Indication: Schizoaffective disorder depressive type
     Dosage: 75MG ONCE IN 4 WEEKS
     Route: 030
  8. INVEGA SUSTENNA [Suspect]
     Active Substance: PALIPERIDONE PALMITATE
     Indication: Catatonia
  9. ARIPIPRAZOLE [Suspect]
     Active Substance: ARIPIPRAZOLE
     Indication: Schizoaffective disorder depressive type
     Dosage: 5 MILLIGRAM DAILY; EVERY MORNING
     Route: 065
  10. ARIPIPRAZOLE [Suspect]
     Active Substance: ARIPIPRAZOLE
     Indication: Catatonia

REACTIONS (4)
  - Ataxia [Unknown]
  - Sedation complication [Unknown]
  - Therapy non-responder [Unknown]
  - Off label use [Unknown]
